FAERS Safety Report 10910824 (Version 1)
Quarter: 2015Q1

REPORT INFORMATION
  Report Type: Spontaneous
  Country: US (occurrence: US)
  Receive Date: 20150312
  Receipt Date: 20150312
  Transmission Date: 20150721
  Serious: No
  Sender: FDA-Public Use
  Company Number: US-ABBVIE-14P-163-1222584-00

PATIENT
  Sex: Male
  Weight: 83.99 kg

DRUGS (2)
  1. DEPAKOTE [Suspect]
     Active Substance: DIVALPROEX SODIUM
     Indication: HEAD INJURY
     Dosage: ONE TABLET IN THE MORNING AND TWO TABLETS IN THE EVENING.
     Dates: start: 2012
  2. TRILAFON [Concomitant]
     Active Substance: PERPHENAZINE
     Indication: HEAD INJURY

REACTIONS (2)
  - Off label use [Unknown]
  - Alopecia [Not Recovered/Not Resolved]
